FAERS Safety Report 18840184 (Version 3)
Quarter: 2022Q1

REPORT INFORMATION
  Report Type: Spontaneous
  Country: US (occurrence: US)
  Receive Date: 20210203
  Receipt Date: 20220214
  Transmission Date: 20220423
  Serious: Yes (Other)
  Sender: FDA-Public Use
  Company Number: US-GW PHARMA-202101USGW00322

PATIENT

DRUGS (2)
  1. EPIDIOLEX [Suspect]
     Active Substance: CANNABIDIOL
     Indication: Lennox-Gastaut syndrome
     Dosage: 350 MILLIGRAM, BID
     Route: 048
     Dates: start: 202011
  2. EPIDIOLEX [Suspect]
     Active Substance: CANNABIDIOL
     Indication: Status epilepticus

REACTIONS (6)
  - Generalised tonic-clonic seizure [Unknown]
  - Generalised onset non-motor seizure [Unknown]
  - Petit mal epilepsy [Unknown]
  - Atonic seizures [Unknown]
  - Product supply issue [Unknown]
  - Insurance issue [Unknown]
